FAERS Safety Report 16894042 (Version 1)
Quarter: 2020Q3

REPORT INFORMATION
  Report Type: Spontaneous
  Country: US (occurrence: US)
  Receive Date: 20190813
  Receipt Date: 20190813
  Transmission Date: 20201104
  Serious: No
  Sender: FDA-Public Use
  Company Number: None

PATIENT
  Age: 80 Year
  Sex: Male

DRUGS (1)
  1. NETARSUDIL. [Suspect]
     Active Substance: NETARSUDIL
     Indication: OPEN ANGLE GLAUCOMA
     Route: 047
     Dates: start: 20190111, end: 20190208

REACTIONS (2)
  - Ocular hyperaemia [None]
  - Eye irritation [None]

NARRATIVE: CASE EVENT DATE: 20190430
